APPROVED DRUG PRODUCT: RAXAR
Active Ingredient: GREPAFLOXACIN HYDROCHLORIDE
Strength: EQ 200MG BASE
Dosage Form/Route: TABLET;ORAL
Application: N020695 | Product #001
Applicant: OTSUKA PHARMACEUTICAL CO LTD
Approved: Nov 6, 1997 | RLD: No | RS: No | Type: DISCN